FAERS Safety Report 7939313-5 (Version None)
Quarter: 2011Q4

REPORT INFORMATION
  Report Type: 
  Country: None (occurrence: None)
  Receive Date: 20111125
  Receipt Date: 20110915
  Transmission Date: 20120403
  Serious: No
  Sender: FDA-Public Use
  Company Number: US-BAYER-2011-106788

PATIENT
  Age: 60 Year
  Sex: Female

DRUGS (1)
  1. LEUKINE [Suspect]
     Indication: BREAST CANCER METASTATIC
     Dosage: UNK
     Dates: start: 20110908

REACTIONS (1)
  - HEAD DISCOMFORT [None]
